FAERS Safety Report 5924117-5 (Version None)
Quarter: 2008Q4

REPORT INFORMATION
  Report Type: 
  Country: None (occurrence: None)
  Receive Date: 20081020
  Receipt Date: 20081010
  Transmission Date: 20090506
  Serious: Yes (Other)
  Sender: FDA-Public Use
  Company Number: PHHY2008JP22527

PATIENT
  Age: 5 Year
  Sex: Male

DRUGS (1)
  1. AREDIA [Suspect]
     Indication: OSTEOGENESIS IMPERFECTA
     Dosage: 16 MG
     Route: 042
     Dates: start: 20070703

REACTIONS (3)
  - BLOOD CALCIUM DECREASED [None]
  - EPISTAXIS [None]
  - PYREXIA [None]
